FAERS Safety Report 4809289-8 (Version None)
Quarter: 2005Q4

REPORT INFORMATION
  Report Type: 
  Country: None (occurrence: None)
  Receive Date: 20051021
  Receipt Date: 20051011
  Transmission Date: 20060501
  Serious: Yes (Life-Threatening, Hospitalization, Other)
  Sender: FDA-Public Use
  Company Number: 200511010GDS

PATIENT
  Age: 68 Year
  Sex: Male
  Weight: 70 kg

DRUGS (17)
  1. AVELOX [Suspect]
     Indication: BRONCHITIS CHRONIC
     Dosage: SEE IMAGE
     Route: 048
     Dates: start: 20050124, end: 20050211
  2. AVELOX [Suspect]
     Indication: PYREXIA
     Dosage: SEE IMAGE
     Route: 048
     Dates: start: 20050124, end: 20050211
  3. AVELOX [Suspect]
     Indication: BRONCHITIS CHRONIC
     Dosage: SEE IMAGE
     Route: 048
     Dates: start: 20050307, end: 20050314
  4. AVELOX [Suspect]
     Indication: PYREXIA
     Dosage: SEE IMAGE
     Route: 048
     Dates: start: 20050307, end: 20050314
  5. AUGMENTIN '125' [Suspect]
     Indication: BRONCHITIS CHRONIC
     Dosage: ORAL
     Route: 048
     Dates: start: 20050101
  6. AUGMENTIN '125' [Suspect]
     Indication: PYREXIA
     Dosage: ORAL
     Route: 048
     Dates: start: 20050101
  7. LINCOCIN               (LINCOMYCIN MONOHYDRATE) [Suspect]
     Indication: BRONCHITIS CHRONIC
     Dates: start: 20050202, end: 20050101
  8. LINCOCIN               (LINCOMYCIN MONOHYDRATE) [Suspect]
     Indication: PYREXIA
     Dates: start: 20050202, end: 20050101
  9. OMEPRAZOLE [Suspect]
     Indication: DYSPEPSIA
     Dates: start: 20050202, end: 20050101
  10. GLUCOPHAGE [Suspect]
     Indication: DIABETES MELLITUS
     Dosage: ORAL
     Route: 048
     Dates: start: 20050310, end: 20050301
  11. MEDROL [Concomitant]
  12. SPIRIVA [Concomitant]
  13. SYMBICORT TURBUHALER ^DRACO^ [Concomitant]
  14. DUOVENT [Concomitant]
  15. INSILUNG [Concomitant]
  16. SOTALOL HCL [Concomitant]
  17. CARDIOASPIRINE [Concomitant]

REACTIONS (3)
  - CARDIOGENIC SHOCK [None]
  - HEPATITIS CHOLESTATIC [None]
  - SEPSIS [None]
